FAERS Safety Report 7751521-5 (Version None)
Quarter: 2011Q3

REPORT INFORMATION
  Report Type: 
  Country: None (occurrence: None)
  Receive Date: 20110914
  Receipt Date: 20110907
  Transmission Date: 20111222
  Serious: Yes (Other)
  Sender: FDA-Public Use
  Company Number: PHHY2011DE79825

PATIENT
  Age: 51 Year
  Sex: Female

DRUGS (2)
  1. ZOLEDRONIC [Suspect]
     Indication: OSTEOPOROSIS
     Dosage: 4 MG, EVERY 3 MONTHS FOR 5 YEARS
     Route: 042
  2. CHEMOTHERAPEUTICS NOS [Concomitant]

REACTIONS (2)
  - OSTEONECROSIS [None]
  - BONE DISORDER [None]
